FAERS Safety Report 8138116-9 (Version None)
Quarter: 2012Q1

REPORT INFORMATION
  Report Type: 
  Country: None (occurrence: None)
  Receive Date: 20120215
  Receipt Date: 20120215
  Transmission Date: 20120608
  Serious: Yes (Other)
  Sender: FDA-Public Use
  Company Number: None

PATIENT
  Age: 46 Year
  Sex: Female
  Weight: 60.781 kg

DRUGS (2)
  1. TOPAMAX [Concomitant]
  2. TOPAMAX [Suspect]
     Indication: EPILEPSY
     Dosage: 225MG
     Route: 048

REACTIONS (16)
  - CROHN'S DISEASE [None]
  - HALLUCINATION [None]
  - VITAMIN D DECREASED [None]
  - DYSLEXIA [None]
  - TREMOR [None]
  - BLOOD POTASSIUM DECREASED [None]
  - ALOPECIA [None]
  - CATARACT [None]
  - MEMORY IMPAIRMENT [None]
  - FATIGUE [None]
  - MALNUTRITION [None]
  - BLOOD CALCIUM DECREASED [None]
  - THOUGHT BLOCKING [None]
  - FEAR [None]
  - VISION BLURRED [None]
  - IRRITABLE BOWEL SYNDROME [None]
